FAERS Safety Report 17815746 (Version 1)
Quarter: 2020Q2

REPORT INFORMATION
  Report Type: Spontaneous
  Country: IN (occurrence: IN)
  Receive Date: 20200522
  Receipt Date: 20200522
  Transmission Date: 20200714
  Serious: Yes (Life-Threatening, Hospitalization)
  Sender: FDA-Public Use
  Company Number: IN-STRIDES ARCOLAB LIMITED-2020SP005948

PATIENT
  Sex: Male

DRUGS (3)
  1. AMIKACIN. [Suspect]
     Active Substance: AMIKACIN
     Indication: PRODUCT USED FOR UNKNOWN INDICATION
     Dosage: UNK
     Route: 042
  2. VANCOMYCIN [Suspect]
     Active Substance: VANCOMYCIN
     Indication: STAPHYLOCOCCAL INFECTION
     Dosage: UNK
     Route: 042
  3. MEROPENEM. [Suspect]
     Active Substance: MEROPENEM
     Indication: STAPHYLOCOCCAL INFECTION
     Dosage: UNK
     Route: 042

REACTIONS (7)
  - Lethargy [Recovered/Resolved]
  - Skin hyperpigmentation [Recovered/Resolved]
  - Shock [Recovered/Resolved]
  - Candida infection [Recovered/Resolved]
  - Thrombocytopenia [Recovered/Resolved]
  - Feeding intolerance [Recovered/Resolved]
  - Fungal sepsis [Recovered/Resolved]
